FAERS Safety Report 18690501 (Version 1)
Quarter: 2020Q4

REPORT INFORMATION
  Report Type: Spontaneous
  Country: US (occurrence: US)
  Receive Date: 20201231
  Receipt Date: 20201231
  Transmission Date: 20210114
  Serious: No
  Sender: FDA-Public Use
  Company Number: US-SA-2020SA373045

PATIENT

DRUGS (1)
  1. DUPIXENT [Suspect]
     Active Substance: DUPILUMAB
     Indication: ASTHMA

REACTIONS (4)
  - Inflammation [Unknown]
  - Fatigue [Unknown]
  - Nausea [Unknown]
  - Sensory overload [Unknown]

NARRATIVE: CASE EVENT DATE: 20200214
